FAERS Safety Report 4614369-6 (Version None)
Quarter: 2005Q2

REPORT INFORMATION
  Report Type: 
  Country: None (occurrence: None)
  Receive Date: 20050311
  Receipt Date: 20041229
  Transmission Date: 20051028
  Serious: No
  Sender: FDA-Public Use
  Company Number: 2004-00288

PATIENT
  Age: 78 Year
  Sex: Male
  Weight: 61.2 kg

DRUGS (3)
  1. VELCADE [Suspect]
     Indication: MULTIPLE MYELOMA
     Dosage: INTRAVENOUS
     Route: 042
     Dates: start: 20030901
  2. OXYCODONE (OXYCODONE) [Concomitant]
  3. CLODRONATE DISODIUM (CLODRONATE DISODIUM) [Concomitant]

REACTIONS (5)
  - AMNESIA [None]
  - ANAEMIA [None]
  - FATIGUE [None]
  - NEUROPATHY PERIPHERAL [None]
  - WHITE BLOOD CELL COUNT DECREASED [None]
